FAERS Safety Report 10067163 (Version 1)
Quarter: 2014Q2

REPORT INFORMATION
  Report Type: Spontaneous
  Country: US (occurrence: US)
  Receive Date: 20140409
  Receipt Date: 20140409
  Transmission Date: 20141212
  Serious: Yes (Other)
  Sender: FDA-Public Use
  Company Number: US-AMGEN INC.-USASP2014024250

PATIENT
  Age: 43 Year
  Sex: Female

DRUGS (1)
  1. ENBREL [Suspect]
     Indication: PSORIATIC ARTHROPATHY
     Dosage: UNK
     Route: 065
     Dates: start: 20140115, end: 20140115

REACTIONS (3)
  - Palpitations [Recovered/Resolved]
  - Throat tightness [Recovered/Resolved]
  - Malaise [Recovered/Resolved]
